FAERS Safety Report 19668792 (Version 1)
Quarter: 2021Q3

REPORT INFORMATION
  Report Type: Spontaneous
  Country: US (occurrence: US)
  Receive Date: 20210806
  Receipt Date: 20210806
  Transmission Date: 20211014
  Serious: No
  Sender: FDA-Public Use
  Company Number: US-TAKEDA-2021TUS048692

PATIENT
  Sex: Female

DRUGS (3)
  1. GAMMAGARD LIQUID [Suspect]
     Active Substance: HUMAN IMMUNOGLOBULIN G
     Indication: PELVIC INFLAMMATORY DISEASE
     Dosage: 20 GRAM
     Route: 065
  2. GAMMAGARD S/D [Suspect]
     Active Substance: HUMAN IMMUNOGLOBULIN G
     Indication: PELVIC INFLAMMATORY DISEASE
     Dosage: 20 GRAM
     Route: 065
  3. GAMMAGARD S/D [Suspect]
     Active Substance: HUMAN IMMUNOGLOBULIN G
     Indication: PELVIC INFLAMMATORY DISEASE
     Dosage: 20 GRAM
     Route: 065

REACTIONS (1)
  - Adverse event [Unknown]
